FAERS Safety Report 17422360 (Version 2)
Quarter: 2020Q3

REPORT INFORMATION
  Report Type: Report from Study
  Country: AU (occurrence: AU)
  Receive Date: 20200214
  Receipt Date: 20200807
  Transmission Date: 20201102
  Serious: Yes (Other)
  Sender: FDA-Public Use
  Company Number: AU-TOLMAR, INC.-2018AU011561

PATIENT
  Sex: Male

DRUGS (2)
  1. ELIGARD [Suspect]
     Active Substance: LEUPROLIDE ACETATE
     Dosage: UNK
     Route: 065
     Dates: start: 20191208
  2. ELIGARD [Suspect]
     Active Substance: LEUPROLIDE ACETATE
     Indication: PROSTATE CANCER
     Dosage: 22.5 MG, 3 MONTHLY
     Route: 058
     Dates: start: 20180813

REACTIONS (7)
  - Dry skin [Unknown]
  - Skin warm [Unknown]
  - Fatigue [Unknown]
  - Pruritus [Unknown]
  - Arthropathy [Unknown]
  - Weight decreased [Unknown]
  - Hot flush [Unknown]
